APPROVED DRUG PRODUCT: ZYRTEC-D 12 HOUR
Active Ingredient: CETIRIZINE HYDROCHLORIDE; PSEUDOEPHEDRINE HYDROCHLORIDE
Strength: 5MG;120MG
Dosage Form/Route: TABLET, EXTENDED RELEASE;ORAL
Application: N021150 | Product #002
Applicant: KENVUE BRANDS LLC
Approved: Nov 9, 2007 | RLD: Yes | RS: Yes | Type: OTC